FAERS Safety Report 19019315 (Version 3)
Quarter: 2024Q3

REPORT INFORMATION
  Report Type: Spontaneous
  Country: US (occurrence: US)
  Receive Date: 20210317
  Receipt Date: 20240831
  Transmission Date: 20241016
  Serious: Yes (Death, Life-Threatening, Other)
  Sender: AMNEAL
  Company Number: US-AMNEAL PHARMACEUTICALS-2021-AMRX-00820

PATIENT
  Age: 46 Year
  Sex: Female
  Weight: 92.063 kg

DRUGS (9)
  1. ACTIVELLA [Suspect]
     Active Substance: ESTRADIOL\NORETHINDRONE ACETATE
     Indication: Uterine leiomyoma
     Dosage: 1 MG/0.5MG, 1X/DAY
     Route: 048
     Dates: start: 20190805, end: 20200826
  2. ACTIVELLA [Suspect]
     Active Substance: ESTRADIOL\NORETHINDRONE ACETATE
     Dosage: 1 MG/0.5MG, 1X/DAY
     Route: 048
     Dates: start: 20200826, end: 20210108
  3. ELAGOLIX SODIUM [Suspect]
     Active Substance: ELAGOLIX SODIUM
     Indication: Uterine leiomyoma
     Dosage: 300 MILLIGRAM, 1X/DAY
     Route: 048
     Dates: start: 20190805, end: 20200826
  4. ELAGOLIX SODIUM [Suspect]
     Active Substance: ELAGOLIX SODIUM
     Dosage: 300 MILLIGRAM, 1X/DAY
     Route: 048
     Dates: start: 20200826, end: 20210108
  5. IRON [Concomitant]
     Active Substance: IRON
     Indication: Supplementation therapy
     Dosage: 65 MILLIGRAM, 1X/DAY
     Route: 048
     Dates: start: 20190420
  6. CHOLECALCIFEROL [Concomitant]
     Active Substance: CHOLECALCIFEROL
     Indication: Supplementation therapy
     Dosage: 1000 IU INTERNATIONAL UNIT(S), 1X/DAY
     Route: 048
     Dates: start: 20190617
  7. IBUPROFEN [Concomitant]
     Active Substance: IBUPROFEN
     Indication: Ligament sprain
     Dosage: 800 MILLIGRAM, 1 AS NEEDED
     Route: 048
     Dates: start: 20191002
  8. ROBAXIN [Concomitant]
     Active Substance: METHOCARBAMOL
     Indication: Ligament sprain
     Dosage: 500 MILLIGRAM, 1 AS NEEDED
     Route: 048
     Dates: start: 20191002
  9. DOCUSATE SODIUM [Concomitant]
     Active Substance: DOCUSATE SODIUM
     Indication: Constipation
     Dosage: 200 MG, EVERY 1 DAYS
     Route: 065
     Dates: start: 20210112

REACTIONS (3)
  - Death [Fatal]
  - Cardiac failure congestive [Unknown]
  - Pulmonary hypertension [Unknown]

NARRATIVE: CASE EVENT DATE: 20210108
